FAERS Safety Report 4876121-6 (Version None)
Quarter: 2006Q1

REPORT INFORMATION
  Report Type: 
  Country: None (occurrence: None)
  Receive Date: 20060106
  Receipt Date: 20060106
  Transmission Date: 20060701
  Serious: Yes (Hospitalization, Disabling)
  Sender: FDA-Public Use
  Company Number: None

PATIENT
  Sex: Female
  Weight: 91.6266 kg

DRUGS (2)
  1. DILANTIN [Suspect]
     Indication: CONVULSION
     Dosage: 500MG QH WITH 600 MG
  2. VERSED [Suspect]
     Indication: STATUS EPILEPTICUS
     Dates: start: 19980701, end: 19980701

REACTIONS (9)
  - ABORTION SPONTANEOUS [None]
  - ASTHENIA [None]
  - ASTROCYTOMA, LOW GRADE [None]
  - DRUG EXPOSURE DURING PREGNANCY [None]
  - HYPOTENSION [None]
  - NEOPLASM PROGRESSION [None]
  - PREGNANCY [None]
  - SEPTIC SHOCK [None]
  - STATUS EPILEPTICUS [None]
